FAERS Safety Report 9003339 (Version 3)
Quarter: 2013Q1

REPORT INFORMATION
  Report Type: Report from Study
  Country: MW (occurrence: MW)
  Receive Date: 20130108
  Receipt Date: 20130313
  Transmission Date: 20140127
  Serious: Yes (Hospitalization, Other)
  Sender: FDA-Public Use
  Company Number: MW-GILEAD-2013-0067253

PATIENT
  Age: 21 None
  Sex: Female

DRUGS (8)
  1. EFAVIRENZ/EMTRICITABINE/TENOFOVIR DISOPROXIL FUMARATE [Suspect]
     Indication: HIV INFECTION
     Dosage: 1 DF, QHS
     Route: 048
     Dates: start: 20121018, end: 20121230
  2. EFAVIRENZ/EMTRICITABINE/TENOFOVIR DISOPROXIL FUMARATE [Suspect]
     Dosage: 1 DF, QD
     Route: 048
     Dates: start: 20130114, end: 20130204
  3. EFAVIRENZ [Suspect]
     Indication: HIV INFECTION
     Dosage: 600 MG, QD
     Route: 048
     Dates: start: 20121018, end: 20121230
  4. EFAVIRENZ [Suspect]
     Dosage: 600 MG, QD
     Route: 048
     Dates: start: 20130114
  5. ISONIAZID W/RIFAMPICIN [Suspect]
     Indication: TUBERCULOSIS
     Dosage: 1 DF, QD
     Route: 048
     Dates: start: 20121210, end: 20121230
  6. ISONIAZID W/RIFAMPICIN [Suspect]
     Dosage: UNK
     Dates: start: 20130114
  7. COTRIMOXAZOLE [Concomitant]
     Indication: ANTIFUNGAL PROPHYLAXIS
     Dosage: UNK, BID
     Route: 048
  8. PYRIDOXINE [Concomitant]
     Indication: NEUROPATHY PERIPHERAL
     Dosage: UNK, QD
     Route: 048

REACTIONS (7)
  - Hepatitis acute [Recovered/Resolved]
  - Kaposi^s sarcoma [Not Recovered/Not Resolved]
  - Malaria [Recovering/Resolving]
  - Salmonella sepsis [Recovering/Resolving]
  - Kaposi^s sarcoma [Unknown]
  - Anaemia [Unknown]
  - Hepatitis [Unknown]
